FAERS Safety Report 13624423 (Version 1)
Quarter: 2017Q2

REPORT INFORMATION
  Report Type: Spontaneous
  Country: US (occurrence: US)
  Receive Date: 20170607
  Receipt Date: 20170607
  Transmission Date: 20170830
  Serious: No
  Sender: FDA-Public Use
  Company Number: US-PURDUE-USA-2016-0135495

PATIENT
  Age: 82 Year
  Sex: Female

DRUGS (9)
  1. AMIODARONE [Concomitant]
     Active Substance: AMIODARONE
     Indication: PRODUCT USED FOR UNKNOWN INDICATION
     Route: 048
  2. VASOTEC [Concomitant]
     Active Substance: ENALAPRIL MALEATE
     Indication: PRODUCT USED FOR UNKNOWN INDICATION
     Route: 048
  3. FUROSEMIDE. [Concomitant]
     Active Substance: FUROSEMIDE
     Indication: PRODUCT USED FOR UNKNOWN INDICATION
     Route: 048
  4. BUTRANS [Suspect]
     Active Substance: BUPRENORPHINE
     Indication: RHEUMATOID ARTHRITIS
     Dosage: 5 MCG/HR, WEEKLY
     Route: 062
     Dates: start: 20161217
  5. OXYCODONE [Concomitant]
     Active Substance: OXYCODONE
     Indication: PRODUCT USED FOR UNKNOWN INDICATION
     Dosage: 5 MG, UNK
     Route: 048
  6. BUTRANS [Suspect]
     Active Substance: BUPRENORPHINE
     Indication: SYSTEMIC LUPUS ERYTHEMATOSUS
  7. BUTRANS [Suspect]
     Active Substance: BUPRENORPHINE
     Indication: OCCIPITAL NEURALGIA
  8. BUTRANS [Suspect]
     Active Substance: BUPRENORPHINE
     Indication: CERVICAL RADICULOPATHY
  9. XANAX [Concomitant]
     Active Substance: ALPRAZOLAM
     Indication: FEELING OF RELAXATION
     Route: 048

REACTIONS (1)
  - Dyspnoea [Recovered/Resolved]
